FAERS Safety Report 18839367 (Version 3)
Quarter: 2021Q2

REPORT INFORMATION
  Report Type: Report from Study
  Country: US (occurrence: US)
  Receive Date: 20210203
  Receipt Date: 20210617
  Transmission Date: 20210717
  Serious: Yes (Hospitalization, Other)
  Sender: FDA-Public Use
  Company Number: US-EXELIXIS-CABO-20034161

PATIENT
  Age: 77 Year
  Sex: Female

DRUGS (17)
  1. MEGESTROL [Concomitant]
     Active Substance: MEGESTROL
  2. KLOR?CON [Concomitant]
     Active Substance: POTASSIUM CHLORIDE
  3. CABOMETYX [Suspect]
     Active Substance: CABOZANTINIB S-MALATE
     Dosage: 20 MG, QD
     Route: 048
     Dates: start: 202102
  4. ATORVASTATIN [Concomitant]
     Active Substance: ATORVASTATIN
  5. OMEPRAZOLE. [Concomitant]
     Active Substance: OMEPRAZOLE
  6. PROCHLORPERAZINE. [Concomitant]
     Active Substance: PROCHLORPERAZINE
  7. XTAMPZA ER [Concomitant]
     Active Substance: OXYCODONE
  8. LEVOTHYROXINE SODIUM. [Concomitant]
     Active Substance: LEVOTHYROXINE SODIUM
  9. CABOMETYX [Suspect]
     Active Substance: CABOZANTINIB S-MALATE
     Dosage: 20 MG, QD
     Route: 048
     Dates: start: 20201031
  10. AMLODIPINE [Concomitant]
     Active Substance: AMLODIPINE BESYLATE
  11. VITAMIN D2 [Concomitant]
     Active Substance: ERGOCALCIFEROL
  12. UREA. [Concomitant]
     Active Substance: UREA
  13. ELIQUIS [Concomitant]
     Active Substance: APIXABAN
  14. PEPCID [Concomitant]
     Active Substance: FAMOTIDINE
  15. BUMETANIDE. [Concomitant]
     Active Substance: BUMETANIDE
  16. CALCIUM CARBONATE. [Concomitant]
     Active Substance: CALCIUM CARBONATE
  17. CABOMETYX [Suspect]
     Active Substance: CABOZANTINIB S-MALATE
     Indication: RENAL CANCER
     Dosage: 40 MG, QD
     Route: 048
     Dates: start: 20201003, end: 20201013

REACTIONS (16)
  - Hyperkeratosis [Unknown]
  - Pain in extremity [Not Recovered/Not Resolved]
  - Diarrhoea [Unknown]
  - Nausea [Unknown]
  - Back pain [Unknown]
  - Impaired healing [Unknown]
  - Erythema [Unknown]
  - Vitamin D decreased [Unknown]
  - Neuropathy peripheral [Unknown]
  - Muscle spasms [Recovered/Resolved]
  - Stomatitis [Unknown]
  - Pneumothorax spontaneous [Recovered/Resolved with Sequelae]
  - Alopecia [Unknown]
  - Blood pressure increased [Recovered/Resolved]
  - Skin ulcer [Unknown]
  - Headache [Not Recovered/Not Resolved]

NARRATIVE: CASE EVENT DATE: 202010
